FAERS Safety Report 5039216-2 (Version None)
Quarter: 2006Q2

REPORT INFORMATION
  Report Type: 
  Country: None (occurrence: None)
  Receive Date: 20060601
  Receipt Date: 20060317
  Transmission Date: 20061013
  Serious: No
  Sender: FDA-Public Use
  Company Number: 2005PV003371

PATIENT
  Age: 65 Year
  Sex: Female
  Weight: 117.4816 kg

DRUGS (5)
  1. BYETTA [Suspect]
     Indication: DIABETES MELLITUS NON-INSULIN-DEPENDENT
     Dosage: SEE IMAGE
     Route: 058
     Dates: start: 20051104, end: 20050101
  2. BYETTA [Suspect]
     Indication: DIABETES MELLITUS NON-INSULIN-DEPENDENT
     Dosage: SEE IMAGE
     Route: 058
     Dates: start: 20050921, end: 20051021
  3. GLUCOTROL [Concomitant]
  4. GLUCOPHAGE [Concomitant]
  5. .. [Concomitant]

REACTIONS (12)
  - BLOOD GLUCOSE DECREASED [None]
  - BLOOD GLUCOSE INCREASED [None]
  - CYSTITIS [None]
  - EMOTIONAL DISTRESS [None]
  - FATIGUE [None]
  - FEELING HOT [None]
  - HYPOVENTILATION [None]
  - INJECTION SITE ERYTHEMA [None]
  - NAUSEA [None]
  - RETCHING [None]
  - URINARY TRACT INFECTION [None]
  - WEIGHT DECREASED [None]
